FAERS Safety Report 9394740 (Version 2)
Quarter: 2013Q3

REPORT INFORMATION
  Report Type: Report from Study
  Country: FR (occurrence: FR)
  Receive Date: 20130711
  Receipt Date: 20130718
  Transmission Date: 20140515
  Serious: Yes (Hospitalization)
  Sender: FDA-Public Use
  Company Number: FR-MPIJNJ-2013-05221

PATIENT
  Sex: 0

DRUGS (11)
  1. VELCADE [Suspect]
     Indication: MANTLE CELL LYMPHOMA
     Dosage: 2.3 MG, UNK
     Route: 042
     Dates: start: 20120404, end: 20121025
  2. MABTHERA [Suspect]
     Indication: MANTLE CELL LYMPHOMA
     Dosage: 177 UNK, UNK
     Route: 042
     Dates: start: 20120404, end: 20121015
  3. LEVACT [Suspect]
     Indication: MANTLE CELL LYMPHOMA
     Dosage: 159 MG, UNK
     Route: 042
     Dates: start: 20120404, end: 20121016
  4. DEXAMETHASONE [Suspect]
     Indication: MANTLE CELL LYMPHOMA
     Dosage: 40 MG, UNK
     Route: 042
     Dates: start: 20120405, end: 20121016
  5. KARDEGIC                           /00002703/ [Concomitant]
     Dosage: 160 MG, UNK
     Route: 048
  6. AMLOR [Concomitant]
     Indication: MYOCARDIAL INFARCTION
     Dosage: 10 MG, UNK
     Route: 048
  7. ATENOLOL [Concomitant]
     Indication: MYOCARDIAL INFARCTION
     Dosage: 50 MG, UNK
     Route: 048
  8. DIAMICRON [Concomitant]
     Indication: DIABETES MELLITUS
     Dosage: 30 MG, UNK
  9. OMEXEL [Concomitant]
  10. FIXICAL [Concomitant]
  11. CORDARONE [Concomitant]

REACTIONS (1)
  - Febrile bone marrow aplasia [Recovered/Resolved]
